FAERS Safety Report 9448858 (Version 1)
Quarter: 2013Q3

REPORT INFORMATION
  Report Type: Spontaneous
  Country: BR (occurrence: None)
  Receive Date: 20130806
  Receipt Date: 20130806
  Transmission Date: 20140515
  Serious: Yes (Disabling)
  Sender: FDA-Public Use
  Company Number: BR-20130086

PATIENT
  Sex: Female

DRUGS (1)
  1. LIPIODOL [Suspect]
     Indication: PRODUCT USED FOR UNKNOWN INDICATION
     Dosage: 1 IN 1 D

REACTIONS (5)
  - Visual impairment [None]
  - Dizziness [None]
  - Headache [None]
  - Hypersensitivity [None]
  - Medication error [None]
